FAERS Safety Report 20694100 (Version 3)
Quarter: 2022Q3

REPORT INFORMATION
  Report Type: Report from Study
  Country: BR (occurrence: BR)
  Receive Date: 20220411
  Receipt Date: 20220721
  Transmission Date: 20221027
  Serious: Yes (Other)
  Sender: FDA-Public Use
  Company Number: BR-ABBVIE-22K-020-4352263-00

PATIENT
  Sex: Female

DRUGS (4)
  1. RINVOQ [Suspect]
     Active Substance: UPADACITINIB
     Indication: Rheumatoid arthritis
     Route: 048
     Dates: start: 20211108
  2. RINVOQ [Suspect]
     Active Substance: UPADACITINIB
     Route: 048
  3. PURAN [Concomitant]
     Active Substance: LEVOTHYROXINE SODIUM
     Indication: Product used for unknown indication
  4. HYDROCHLOROTHIAZIDE\VALSARTAN [Concomitant]
     Active Substance: HYDROCHLOROTHIAZIDE\VALSARTAN
     Indication: Product used for unknown indication

REACTIONS (9)
  - Dental operation [Recovering/Resolving]
  - Pulpitis dental [Unknown]
  - Tooth loss [Unknown]
  - Skin discolouration [Unknown]
  - Pain in extremity [Unknown]
  - Blood urea increased [Unknown]
  - Weight decreased [Unknown]
  - Pruritus [Unknown]
  - Anaemia [Unknown]
